FAERS Safety Report 7348466-1 (Version None)
Quarter: 2011Q1

REPORT INFORMATION
  Report Type: 
  Country: None (occurrence: None)
  Receive Date: 20110314
  Receipt Date: 20110305
  Transmission Date: 20110831
  Serious: Yes (Hospitalization)
  Sender: FDA-Public Use
  Company Number: CZ-AMGEN-CZECT2011005855

PATIENT
  Age: 29 Year
  Sex: Female

DRUGS (5)
  1. ETANERCEPT [Suspect]
     Indication: RHEUMATOID ARTHRITIS
     Dosage: 50 MG, QWK
     Route: 058
     Dates: start: 20060502
  2. METHOTREXATE [Concomitant]
     Dosage: 10 MG, WEEKLY
  3. ACIDUM FOLICUM [Concomitant]
     Dosage: WEEKLY
  4. OSTEOCARE                          /01424301/ [Concomitant]
  5. CELEBREX [Concomitant]
     Dosage: 200 MG, QD

REACTIONS (1)
  - SCHIZOPHRENIA [None]
